FAERS Safety Report 7758450-1 (Version None)
Quarter: 2011Q3

REPORT INFORMATION
  Report Type: 
  Country: None (occurrence: None)
  Receive Date: 20110919
  Receipt Date: 20110913
  Transmission Date: 20111222
  Serious: No
  Sender: FDA-Public Use
  Company Number: US-PFIZER INC-2011216812

PATIENT
  Sex: Female
  Weight: 81.633 kg

DRUGS (2)
  1. PLAN B [Suspect]
     Indication: CONTRACEPTION
     Dosage: 0.75 MG, UNK
     Route: 048
     Dates: start: 20110801, end: 20110801
  2. DEPO-PROVERA [Suspect]
     Indication: CONTRACEPTION
     Dosage: UNK
     Dates: end: 20110601

REACTIONS (1)
  - MENSTRUATION DELAYED [None]
